FAERS Safety Report 25481266 (Version 1)
Quarter: 2025Q2

REPORT INFORMATION
  Report Type: Spontaneous
  Country: US (occurrence: US)
  Receive Date: 20250626
  Receipt Date: 20250626
  Transmission Date: 20250717
  Serious: No
  Sender: ACCORD
  Company Number: US-Accord-444341

PATIENT
  Sex: Male

DRUGS (1)
  1. CLONAZEPAM [Suspect]
     Active Substance: CLONAZEPAM
     Indication: Anxiety
     Dates: start: 20240825

REACTIONS (4)
  - Asthenia [Unknown]
  - Palpitations [Unknown]
  - Head discomfort [Unknown]
  - Anxiety [Unknown]
